FAERS Safety Report 23206410 (Version 1)
Quarter: 2023Q4

REPORT INFORMATION
  Report Type: Spontaneous
  Country: CN (occurrence: CN)
  Receive Date: 20231120
  Receipt Date: 20231120
  Transmission Date: 20240110
  Serious: Yes (Other)
  Sender: FDA-Public Use
  Company Number: CN-NAPPMUNDI-GBR-2023-0112262

PATIENT
  Age: 75 Year
  Sex: Male
  Weight: 56 kg

DRUGS (14)
  1. MS CONTIN [Suspect]
     Active Substance: MORPHINE SULFATE
     Indication: Analgesic therapy
     Dosage: 10 MILLIGRAM, Q12H
     Route: 048
     Dates: start: 20231003, end: 20231005
  2. MS CONTIN [Suspect]
     Active Substance: MORPHINE SULFATE
     Dosage: 30 MILLIGRAM, Q12H
     Route: 048
     Dates: start: 20231006, end: 20231009
  3. MS CONTIN [Suspect]
     Active Substance: MORPHINE SULFATE
     Dosage: 60 MILLIGRAM, Q12H
     Route: 048
     Dates: start: 20231010, end: 20231010
  4. MS CONTIN [Suspect]
     Active Substance: MORPHINE SULFATE
     Dosage: 90 MILLIGRAM, Q12H
     Route: 048
     Dates: start: 20231011, end: 20231011
  5. MS CONTIN [Suspect]
     Active Substance: MORPHINE SULFATE
     Dosage: 60 MILLIGRAM, Q12H
     Route: 048
  6. NALOXONE [Suspect]
     Active Substance: NALOXONE
     Indication: Poisoning
     Dosage: 0.4 MILLIGRAM
     Route: 042
     Dates: start: 202310
  7. NALOXONE [Suspect]
     Active Substance: NALOXONE
     Indication: Miosis
  8. NALOXONE [Suspect]
     Active Substance: NALOXONE
     Indication: Pupillary reflex impaired
  9. NALOXONE [Suspect]
     Active Substance: NALOXONE
     Indication: Wheezing
  10. DIAZEPAM [Suspect]
     Active Substance: DIAZEPAM
     Indication: Poisoning
     Dosage: 10 MILLIGRAM
     Route: 042
     Dates: start: 202310
  11. DIAZEPAM [Suspect]
     Active Substance: DIAZEPAM
     Indication: Miosis
  12. DIAZEPAM [Suspect]
     Active Substance: DIAZEPAM
     Indication: Pupillary reflex impaired
  13. DIAZEPAM [Suspect]
     Active Substance: DIAZEPAM
     Indication: Wheezing
  14. DIAZEPAM [Suspect]
     Active Substance: DIAZEPAM
     Indication: Restlessness

REACTIONS (9)
  - Toxicity to various agents [Recovering/Resolving]
  - Miosis [Recovering/Resolving]
  - Pupillary reflex impaired [Recovering/Resolving]
  - Wheezing [Recovering/Resolving]
  - Dyspnoea [Recovering/Resolving]
  - Asthma [Recovering/Resolving]
  - Restlessness [Recovering/Resolving]
  - Pain [Unknown]
  - Lethargy [Unknown]

NARRATIVE: CASE EVENT DATE: 20231001
